FAERS Safety Report 23159393 (Version 2)
Quarter: 2023Q4

REPORT INFORMATION
  Report Type: Spontaneous
  Country: JP (occurrence: JP)
  Receive Date: 20231108
  Receipt Date: 20231115
  Transmission Date: 20240110
  Serious: Yes (Other)
  Sender: FDA-Public Use
  Company Number: JP-BRISTOL-MYERS SQUIBB COMPANY-2023-051274

PATIENT
  Age: 54 Year
  Sex: Female
  Weight: 62.1 kg

DRUGS (13)
  1. REVLIMID [Suspect]
     Active Substance: LENALIDOMIDE
     Indication: Marginal zone lymphoma
     Dates: start: 20220512, end: 20220601
  2. REVLIMID [Suspect]
     Active Substance: LENALIDOMIDE
     Dates: start: 20220608, end: 20220628
  3. REVLIMID [Suspect]
     Active Substance: LENALIDOMIDE
     Dates: start: 20220706, end: 20220726
  4. REVLIMID [Suspect]
     Active Substance: LENALIDOMIDE
     Dates: start: 20220803, end: 20220823
  5. REVLIMID [Suspect]
     Active Substance: LENALIDOMIDE
     Dates: start: 20220907, end: 20220927
  6. REVLIMID [Suspect]
     Active Substance: LENALIDOMIDE
     Dates: start: 20221005, end: 20221025
  7. RITUXIMAB [Concomitant]
     Active Substance: RITUXIMAB
     Indication: Marginal zone lymphoma
     Dates: start: 20220512
  8. RITUXIMAB [Concomitant]
     Active Substance: RITUXIMAB
     Dates: start: 20220519
  9. RITUXIMAB [Concomitant]
     Active Substance: RITUXIMAB
     Dates: start: 20220526
  10. RITUXIMAB [Concomitant]
     Active Substance: RITUXIMAB
     Dates: start: 20220609
  11. RITUXIMAB [Concomitant]
     Active Substance: RITUXIMAB
     Dates: start: 20220706
  12. RITUXIMAB [Concomitant]
     Active Substance: RITUXIMAB
     Dates: start: 20220907
  13. ASPIRIN [Concomitant]
     Active Substance: ASPIRIN
     Indication: Prophylaxis
     Route: 048
     Dates: start: 20220513

REACTIONS (5)
  - Anaemia [Unknown]
  - Oedema peripheral [Unknown]
  - Thrombosis [Unknown]
  - Cervix disorder [Unknown]
  - Weight increased [Unknown]
